FAERS Safety Report 9816061 (Version 1)
Quarter: 2014Q1

REPORT INFORMATION
  Report Type: Spontaneous
  Country: IT (occurrence: IT)
  Receive Date: 20140114
  Receipt Date: 20140114
  Transmission Date: 20141002
  Serious: Yes (Other)
  Sender: FDA-Public Use
  Company Number: IT-ACTAVIS-2013-24376

PATIENT
  Age: 61 Year
  Sex: Male

DRUGS (3)
  1. IRINOTECAN (UNKNOWN) [Suspect]
     Indication: COLON NEOPLASM
     Dosage: 288 MG, CYCLICAL
     Route: 042
     Dates: start: 20130506, end: 20130520
  2. FLUOROURACIL (UNKNOWN) [Suspect]
     Indication: COLON CANCER
     Dosage: 4480 MG, CYCLICAL
     Route: 042
     Dates: start: 20110103, end: 20130520
  3. BEVACIZUMAB [Concomitant]
     Indication: PRODUCT USED FOR UNKNOWN INDICATION
     Dosage: UNK, UNK
     Route: 042

REACTIONS (1)
  - Neutropenia [Recovered/Resolved]
